FAERS Safety Report 12752705 (Version 1)
Quarter: 2016Q3

REPORT INFORMATION
  Report Type: Spontaneous
  Country: US (occurrence: US)
  Receive Date: 20160916
  Receipt Date: 20160916
  Transmission Date: 20161109
  Serious: Yes (Hospitalization)
  Sender: FDA-Public Use
  Company Number: None

PATIENT
  Age: 67 Year
  Sex: Male
  Weight: 117 kg

DRUGS (4)
  1. ENZALUTAMIDE [Suspect]
     Active Substance: ENZALUTAMIDE
     Indication: PRURITUS
     Route: 048
     Dates: start: 20160708, end: 20160727
  2. ENZALUTAMIDE [Suspect]
     Active Substance: ENZALUTAMIDE
     Indication: STEVENS-JOHNSON SYNDROME
     Route: 048
     Dates: start: 20160708, end: 20160727
  3. ENZALUTAMIDE [Suspect]
     Active Substance: ENZALUTAMIDE
     Indication: SWELLING
     Route: 048
     Dates: start: 20160708, end: 20160727
  4. ENZALUTAMIDE [Suspect]
     Active Substance: ENZALUTAMIDE
     Indication: BLISTER
     Route: 048
     Dates: start: 20160708, end: 20160727

REACTIONS (6)
  - Blister [None]
  - Swelling [None]
  - Pruritus [None]
  - Urticaria [None]
  - Rash [None]
  - Stevens-Johnson syndrome [None]

NARRATIVE: CASE EVENT DATE: 20160727
